FAERS Safety Report 25068910 (Version 1)
Quarter: 2025Q1

REPORT INFORMATION
  Report Type: Spontaneous
  Country: US (occurrence: None)
  Receive Date: 20250312
  Receipt Date: 20250312
  Transmission Date: 20250409
  Serious: Yes (Hospitalization)
  Sender: FDA-CTU
  Company Number: None

PATIENT
  Age: 69 Year
  Sex: Female

DRUGS (11)
  1. LENALIDOMIDE [Suspect]
     Active Substance: LENALIDOMIDE
     Indication: Plasma cell myeloma
     Dosage: FREQUENCY : DAILY;?
     Route: 048
     Dates: start: 20250215
  2. ACETAMINOPHE TAB 500MG [Concomitant]
  3. ALBUTEROL POW SULFATE [Concomitant]
  4. ALLOPURINOL TAB 100MG [Concomitant]
  5. AZITHROMYCIN [Concomitant]
     Active Substance: AZITHROMYCIN
  6. B-12 SUB 1000MCG [Concomitant]
  7. BACTRIM DS [Concomitant]
     Active Substance: SULFAMETHOXAZOLE\TRIMETHOPRIM
  8. BENZONATATE CAP 100MG [Concomitant]
  9. BREO ELLIPTA INH 100-25 [Concomitant]
  10. CALCIUM/D3 TAB 600-800 [Concomitant]
  11. CEFDINIR [Concomitant]
     Active Substance: CEFDINIR

REACTIONS (1)
  - Blood potassium decreased [None]

NARRATIVE: CASE EVENT DATE: 20250308
